FAERS Safety Report 6180620-7 (Version None)
Quarter: 2009Q2

REPORT INFORMATION
  Report Type: 
  Country: None (occurrence: None)
  Receive Date: 20090506
  Receipt Date: 20090427
  Transmission Date: 20091009
  Serious: Yes (Other)
  Sender: FDA-Public Use
  Company Number: PHHO2008ES06769

PATIENT
  Sex: Male

DRUGS (9)
  1. BLINDED NO TREATMENT RECEIVED NOMED [Suspect]
     Indication: CARCINOID TUMOUR
     Dosage: DOUBLE BLIND
     Route: 048
     Dates: start: 20080310, end: 20080527
  2. BLINDED PLACEBO COMP-PLA+ [Suspect]
     Indication: CARCINOID TUMOUR
     Dosage: DOUBLE BLIND
     Route: 048
     Dates: start: 20080310, end: 20080527
  3. BLINDED RAD 666 RAD+TAB [Suspect]
     Indication: CARCINOID TUMOUR
     Dosage: DOUBLE BLIND
     Route: 048
     Dates: start: 20080310, end: 20080527
  4. BLINDED NO TREATMENT RECEIVED NOMED [Suspect]
     Dosage: NO TREATMENT
     Dates: start: 20080528
  5. BLINDED PLACEBO COMP-PLA+ [Suspect]
     Dosage: NO TREATMENT
     Dates: start: 20080528
  6. BLINDED RAD 666 RAD+TAB [Suspect]
     Dosage: NO TREATMENT
     Dates: start: 20080528
  7. SANDOSTATIN LAR [Suspect]
     Indication: CARCINOID TUMOUR
     Dosage: DOUBLE BLIND
     Route: 058
     Dates: start: 20080310, end: 20080527
  8. SANDOSTATIN LAR [Suspect]
     Dosage: NO TREATMENT
     Dates: start: 20080528
  9. COZAAR [Concomitant]

REACTIONS (7)
  - ASTHENIA [None]
  - BLOOD LACTATE DEHYDROGENASE INCREASED [None]
  - C-REACTIVE PROTEIN INCREASED [None]
  - DYSPNOEA [None]
  - INTERSTITIAL LUNG DISEASE [None]
  - PRODUCTIVE COUGH [None]
  - PYREXIA [None]
